FAERS Safety Report 6612120-1 (Version None)
Quarter: 2010Q1

REPORT INFORMATION
  Report Type: 
  Country: None (occurrence: None)
  Receive Date: 20100303
  Receipt Date: 20100224
  Transmission Date: 20100710
  Serious: Yes (Hospitalization)
  Sender: FDA-Public Use
  Company Number: US-GILEAD-2010-0027310

PATIENT
  Sex: Female

DRUGS (9)
  1. LETAIRIS [Suspect]
     Indication: PULMONARY ARTERIAL HYPERTENSION
     Route: 048
  2. LISINOPRIL [Concomitant]
  3. IMURAN [Concomitant]
  4. PREDNISONE [Concomitant]
  5. FLOLAN [Concomitant]
  6. NEXIUM [Concomitant]
  7. DOC-Q-LACE [Concomitant]
  8. MULTI-VITAMINS [Concomitant]
  9. IRON [Concomitant]

REACTIONS (1)
  - HEPATIC NEOPLASM MALIGNANT [None]
